FAERS Safety Report 9530435 (Version 6)
Quarter: 2015Q2

REPORT INFORMATION
  Report Type: Spontaneous
  Country: CA (occurrence: CA)
  Receive Date: 20130918
  Receipt Date: 20150513
  Transmission Date: 20150821
  Serious: Yes (Other)
  Sender: FDA-Public Use
  Company Number: CA-ROCHE-GNE309842

PATIENT
  Age: 48 Year
  Sex: Female

DRUGS (3)
  1. XOLAIR [Suspect]
     Active Substance: OMALIZUMAB
     Indication: ASTHMA
     Route: 058
     Dates: start: 20081014
  2. XOLAIR [Suspect]
     Active Substance: OMALIZUMAB
     Route: 058
     Dates: start: 20100824
  3. CLARITHROMYCIN. [Concomitant]
     Active Substance: CLARITHROMYCIN

REACTIONS (25)
  - Emotional disorder [Unknown]
  - Stress [Unknown]
  - Sinusitis [Unknown]
  - Feeling cold [Unknown]
  - Hyperhidrosis [Unknown]
  - Epilepsy [Unknown]
  - Dyspnoea [Unknown]
  - Asthenia [Unknown]
  - Respiratory tract infection [Unknown]
  - Mental disorder [Unknown]
  - Loss of consciousness [Unknown]
  - Ear infection [Unknown]
  - Hypersensitivity [Unknown]
  - Immunodeficiency [Unknown]
  - Blister [Unknown]
  - Palpitations [Unknown]
  - Gait disturbance [Unknown]
  - Dizziness [Unknown]
  - Reproductive tract disorder [Unknown]
  - Staphylococcal infection [Unknown]
  - Malaise [Unknown]
  - Ear swelling [Unknown]
  - Skin infection [Unknown]
  - Asthma [Unknown]
  - Herpes zoster [Unknown]

NARRATIVE: CASE EVENT DATE: 201412
